FAERS Safety Report 23979707 (Version 1)
Quarter: 2024Q2

REPORT INFORMATION
  Report Type: Spontaneous
  Country: US (occurrence: US)
  Receive Date: 20240616
  Receipt Date: 20240616
  Transmission Date: 20240715
  Serious: No
  Sender: FDA-Public Use
  Company Number: US-JNJFOC-20240630898

PATIENT
  Sex: Female

DRUGS (3)
  1. SPRAVATO [Suspect]
     Active Substance: ESKETAMINE
     Indication: Depression
     Dates: start: 20230307, end: 20230327
  2. SPRAVATO [Suspect]
     Active Substance: ESKETAMINE
     Dates: start: 20230404, end: 20231009
  3. SPRAVATO [Suspect]
     Active Substance: ESKETAMINE
     Dates: start: 20240103, end: 20240415

REACTIONS (4)
  - Concussion [Unknown]
  - Fall [Unknown]
  - Feeling abnormal [Unknown]
  - Paraesthesia [Unknown]
